FAERS Safety Report 12327611 (Version 1)
Quarter: 2016Q2

REPORT INFORMATION
  Report Type: Spontaneous
  Country: US (occurrence: US)
  Receive Date: 20160503
  Receipt Date: 20160503
  Transmission Date: 20160815
  Serious: No
  Sender: FDA-Public Use
  Company Number: US-TEVA-569901USA

PATIENT
  Sex: Male

DRUGS (1)
  1. ATENOLOL. [Suspect]
     Active Substance: ATENOLOL
     Route: 065

REACTIONS (5)
  - Tension headache [Unknown]
  - Tinnitus [Unknown]
  - Visual impairment [Unknown]
  - Paraesthesia [Unknown]
  - Headache [Unknown]
